FAERS Safety Report 10524442 (Version 1)
Quarter: 2014Q4

REPORT INFORMATION
  Report Type: Spontaneous
  Country: US (occurrence: None)
  Receive Date: 20141015
  Receipt Date: 20141015
  Transmission Date: 20150528
  Serious: Yes (Other)
  Sender: FDA-Public Use
  Company Number: 140397

PATIENT
  Age: 67 Year
  Sex: Male
  Weight: 77.11 kg

DRUGS (4)
  1. GENERIC XANAX [Concomitant]
  2. GENERIC FOSAMAX [Concomitant]
  3. ASPIRIN. [Concomitant]
     Active Substance: ASPIRIN
  4. SUPREP BOWEL PREP [Suspect]
     Active Substance: MAGNESIUM SULFATE\POTASSIUM SULFATE\SODIUM SULFATE
     Indication: COLONOSCOPY
     Dosage: 2 X 6 OZ. BOTTLE 1X PO
     Dates: start: 20140914, end: 20140915

REACTIONS (9)
  - Dizziness [None]
  - Nausea [None]
  - Urticaria [None]
  - Hypotension [None]
  - Pruritus [None]
  - Ocular hyperaemia [None]
  - Erythema [None]
  - Swelling face [None]
  - Dysphagia [None]

NARRATIVE: CASE EVENT DATE: 20140915
